FAERS Safety Report 13828783 (Version 1)
Quarter: 2017Q3

REPORT INFORMATION
  Report Type: Spontaneous
  Country: US (occurrence: US)
  Receive Date: 20170802
  Receipt Date: 20170802
  Transmission Date: 20171127
  Serious: Yes (Disabling)
  Sender: FDA-Public Use
  Company Number: None

PATIENT
  Sex: Female
  Weight: 81 kg

DRUGS (9)
  1. BUPROPION. [Concomitant]
     Active Substance: BUPROPION
  2. PROMETHAZINE [Concomitant]
     Active Substance: PROMETHAZINE\PROMETHAZINE HYDROCHLORIDE
  3. VENLAFAXINE [Concomitant]
     Active Substance: VENLAFAXINE HYDROCHLORIDE
  4. AMITRIPTYLINE [Concomitant]
     Active Substance: AMITRIPTYLINE
  5. GABAPENTIN. [Suspect]
     Active Substance: GABAPENTIN
     Indication: MIGRAINE
     Dosage: ?          QUANTITY:60 TABLET(S);?
     Route: 048
     Dates: start: 20150620, end: 20150910
  6. RIZATRILAN [Concomitant]
  7. HYDROXYZINE [Concomitant]
     Active Substance: HYDROXYZINE HYDROCHLORIDE
  8. PROZOSIN [Concomitant]
  9. SERQUEL [Concomitant]

REACTIONS (5)
  - Aphasia [None]
  - Hallucination, visual [None]
  - Panic attack [None]
  - Memory impairment [None]
  - Feeling abnormal [None]

NARRATIVE: CASE EVENT DATE: 20150620
